FAERS Safety Report 7015330-7 (Version None)
Quarter: 2010Q3

REPORT INFORMATION
  Report Type: 
  Country: None (occurrence: None)
  Receive Date: 20100924
  Receipt Date: 20100924
  Transmission Date: 20110219
  Serious: Yes (Life-Threatening, Hospitalization, Disabling)
  Sender: FDA-Public Use
  Company Number: None

PATIENT
  Age: 51 Year
  Sex: Female
  Weight: 63.5036 kg

DRUGS (1)
  1. FENTANYL [Suspect]
     Indication: ECHOCARDIOGRAM
     Dosage: IV BOLUS
     Route: 040
     Dates: start: 20100920, end: 20100920

REACTIONS (4)
  - CONVULSION [None]
  - DEPRESSION [None]
  - LOSS OF CONSCIOUSNESS [None]
  - MENTAL DISORDER [None]
